FAERS Safety Report 7545050-1 (Version None)
Quarter: 2011Q2

REPORT INFORMATION
  Report Type: 
  Country: None (occurrence: None)
  Receive Date: 20110614
  Receipt Date: 20110204
  Transmission Date: 20111010
  Serious: Yes (Hospitalization, Other)
  Sender: FDA-Public Use
  Company Number: US-BAYER-200939676NA

PATIENT
  Age: 31 Year
  Sex: Female
  Weight: 83.9 kg

DRUGS (13)
  1. ZYRTEC-D 12 HOUR [Concomitant]
     Dosage: UNK UNK, QD
     Route: 048
     Dates: start: 20070612
  2. DIETHYLPROPION [Concomitant]
     Dosage: 75 MG, UNK
     Route: 048
     Dates: start: 20051118
  3. YASMIN [Suspect]
     Indication: DYSMENORRHOEA
  4. YAZ [Suspect]
     Indication: MENSTRUATION IRREGULAR
  5. YAZ [Suspect]
     Indication: DYSMENORRHOEA
  6. TRAMADOL HCL [Concomitant]
     Dosage: 50 MG, UNK
     Route: 048
     Dates: start: 20060117
  7. TERCONAZOLE [Concomitant]
     Dosage: UNK
     Route: 048
     Dates: start: 20060714
  8. YASMIN [Suspect]
     Indication: ORAL CONTRACEPTION
     Dosage: UNK
     Dates: start: 20020101, end: 20080801
  9. YASMIN [Suspect]
     Indication: MENSTRUATION IRREGULAR
  10. YAZ [Suspect]
     Indication: ORAL CONTRACEPTION
     Dosage: UNK
     Dates: start: 20020101, end: 20080801
  11. AZITHROMYCIN [Concomitant]
     Dosage: 500 MG, UNK
     Route: 048
     Dates: start: 20061018
  12. CEPHALEXIN [Concomitant]
     Dosage: 500 MG, UNK
     Route: 048
     Dates: start: 20070402
  13. CIPROFLOXACIN HCL [Concomitant]
     Dosage: UNK UNK, QD
     Route: 048
     Dates: start: 20071126

REACTIONS (10)
  - CHEST PAIN [None]
  - NAUSEA [None]
  - DYSPNOEA [None]
  - ABDOMINAL PAIN [None]
  - VOMITING [None]
  - ABDOMINAL DISTENSION [None]
  - CHOLECYSTITIS CHRONIC [None]
  - CHOLELITHIASIS [None]
  - PULMONARY EMBOLISM [None]
  - ABDOMINAL TENDERNESS [None]
